FAERS Safety Report 4916613-4 (Version None)
Quarter: 2006Q1

REPORT INFORMATION
  Report Type: 
  Country: None (occurrence: None)
  Receive Date: 20060220
  Receipt Date: 20060207
  Transmission Date: 20060701
  Serious: Yes (Hospitalization)
  Sender: FDA-Public Use
  Company Number: FR-GLAXOSMITHKLINE-B0411313A

PATIENT
  Age: 84 Year
  Sex: Male

DRUGS (15)
  1. DEROXAT [Suspect]
     Route: 048
     Dates: end: 20060102
  2. ZYLORIC [Suspect]
     Route: 048
     Dates: end: 20060102
  3. COUMADIN [Suspect]
     Route: 048
     Dates: end: 20060102
  4. OMEPRAZOLE [Suspect]
     Route: 048
     Dates: end: 20060106
  5. TAZOCILLINE [Suspect]
     Route: 042
     Dates: start: 20060102, end: 20060103
  6. FORLAX [Suspect]
     Route: 048
     Dates: end: 20060102
  7. FONZYLANE [Suspect]
     Route: 048
     Dates: end: 20060102
  8. ACETAMINOPHEN [Suspect]
     Route: 048
     Dates: end: 20060102
  9. PERFALGAN [Suspect]
     Dates: start: 20060102, end: 20060104
  10. VENTOLIN [Concomitant]
     Indication: SUPERINFECTION LUNG
     Route: 055
     Dates: start: 20060102
  11. AUGMENTIN '125' [Concomitant]
     Indication: SUPERINFECTION LUNG
     Route: 048
     Dates: start: 20060104, end: 20060104
  12. DIGOXIN [Concomitant]
     Dates: end: 20060102
  13. FLUDROCORTISONE [Concomitant]
     Route: 055
  14. TAVANIC [Concomitant]
     Dates: start: 20060102, end: 20060102
  15. ATROVENT [Concomitant]
     Route: 055
     Dates: start: 20060102

REACTIONS (5)
  - CONFUSIONAL STATE [None]
  - HEPATOCELLULAR DAMAGE [None]
  - MYOCLONUS [None]
  - RENAL FAILURE ACUTE [None]
  - SOMNOLENCE [None]
